FAERS Safety Report 11977531 (Version 1)
Quarter: 2016Q1

REPORT INFORMATION
  Report Type: Spontaneous
  Country: US (occurrence: None)
  Receive Date: 20160128
  Receipt Date: 20160128
  Transmission Date: 20160526
  Serious: No
  Sender: FDA-Public Use
  Company Number: None

PATIENT
  Age: 83 Year
  Sex: Female
  Weight: 47.17 kg

DRUGS (11)
  1. OXYCODONE [Concomitant]
     Active Substance: OXYCODONE
  2. LORAZAPAM [Concomitant]
     Active Substance: LORAZEPAM
  3. NAMENDA [Suspect]
     Active Substance: MEMANTINE HYDROCHLORIDE
     Indication: OFF LABEL USE
     Dosage: 5 MG 1 WK 5 MF BID, 10 MG BID TWICE DAILY TAKEN BY MOUTH
     Route: 048
     Dates: start: 20141206, end: 20141226
  4. CINNAMON. [Concomitant]
     Active Substance: CINNAMON
  5. AMITRYPTALINE [Concomitant]
     Active Substance: AMITRIPTYLINE
  6. CALCIUM WITH D3 [Concomitant]
  7. VITAMIN D3 [Concomitant]
     Active Substance: CHOLECALCIFEROL
  8. MULTIVITAMIN [Concomitant]
     Active Substance: VITAMINS
  9. NAMENDA [Suspect]
     Active Substance: MEMANTINE HYDROCHLORIDE
     Indication: MIGRAINE
     Dosage: 5 MG 1 WK 5 MF BID, 10 MG BID TWICE DAILY TAKEN BY MOUTH
     Route: 048
     Dates: start: 20141206, end: 20141226
  10. CRANBERRY TAB [Concomitant]
  11. DUCOSATE [Concomitant]

REACTIONS (3)
  - Gait disturbance [None]
  - Migraine [None]
  - Tremor [None]

NARRATIVE: CASE EVENT DATE: 20141223
